FAERS Safety Report 7076305-5 (Version None)
Quarter: 2010Q4

REPORT INFORMATION
  Report Type: 
  Country: None (occurrence: None)
  Receive Date: 20101101
  Receipt Date: 20101022
  Transmission Date: 20110411
  Serious: Yes (Disabling, Other)
  Sender: FDA-Public Use
  Company Number: JP-JNJFOC-20100801892

PATIENT
  Sex: Female
  Weight: 47 kg

DRUGS (9)
  1. DOXIL [Suspect]
     Indication: OVARIAN CANCER RECURRENT
     Dosage: CYCLE 3
     Route: 042
  2. DOXIL [Suspect]
     Dosage: CYCLE 4
     Route: 042
  3. DOXIL [Suspect]
     Dosage: CYCLE 2
     Route: 042
  4. DOXIL [Suspect]
     Dosage: CYCLE 1
     Route: 042
  5. RAMELTEON [Concomitant]
     Indication: NAUSEA
     Route: 042
  6. ORGADRONE [Concomitant]
     Indication: NAUSEA
     Route: 042
  7. DEXALTIN [Concomitant]
     Indication: STOMATITIS
     Route: 061
  8. APHTHASOL [Concomitant]
     Indication: STOMATITIS
     Route: 003
  9. AZUNOL [Concomitant]
     Indication: STOMATITIS
     Route: 049

REACTIONS (1)
  - ULCER [None]
